FAERS Safety Report 4907195-1 (Version None)
Quarter: 2006Q1

REPORT INFORMATION
  Report Type: 
  Country: None (occurrence: None)
  Receive Date: 20060207
  Receipt Date: 20060120
  Transmission Date: 20060701
  Serious: Yes (Other)
  Sender: FDA-Public Use
  Company Number: US200601002758

PATIENT
  Age: 82 Year
  Sex: Female

DRUGS (1)
  1. EVISTA [Suspect]
     Indication: OSTEOPOROSIS
     Dosage: ORAL
     Route: 048
     Dates: end: 20060101

REACTIONS (2)
  - DRUG INEFFECTIVE [None]
  - SPINAL COMPRESSION FRACTURE [None]
